FAERS Safety Report 4575653-8 (Version None)
Quarter: 2005Q1

REPORT INFORMATION
  Report Type: 
  Country: None (occurrence: None)
  Receive Date: 20050209
  Receipt Date: 20050131
  Transmission Date: 20050727
  Serious: Yes (Other)
  Sender: FDA-Public Use
  Company Number: IE-GLAXOSMITHKLINE-B0370273A

PATIENT
  Sex: Female

DRUGS (2)
  1. VENTODISK [Suspect]
     Indication: ASTHMA
  2. BECODISKS [Suspect]
     Indication: ASTHMA

REACTIONS (1)
  - CATARACT [None]
